FAERS Safety Report 13332644 (Version 1)
Quarter: 2017Q1

REPORT INFORMATION
  Report Type: Spontaneous
  Country: US (occurrence: US)
  Receive Date: 20170314
  Receipt Date: 20170314
  Transmission Date: 20170428
  Serious: Yes (Hospitalization)
  Sender: FDA-Public Use
  Company Number: None

PATIENT
  Age: 90 Year
  Sex: Male
  Weight: 62.7 kg

DRUGS (1)
  1. WARFARIN [Suspect]
     Active Substance: WARFARIN
     Indication: ATRIAL FIBRILLATION
     Dates: start: 20131026, end: 20161216

REACTIONS (3)
  - Diverticulum intestinal haemorrhagic [None]
  - Refusal of treatment by relative [None]
  - Gastric haemorrhage [None]

NARRATIVE: CASE EVENT DATE: 20161216
